FAERS Safety Report 23175242 (Version 1)
Quarter: 2023Q4

REPORT INFORMATION
  Report Type: Spontaneous
  Country: FR (occurrence: FR)
  Receive Date: 20231113
  Receipt Date: 20231113
  Transmission Date: 20240110
  Serious: Yes (Other)
  Sender: FDA-Public Use
  Company Number: FR-JNJFOC-20200711892

PATIENT
  Age: 72 Year
  Sex: Male

DRUGS (3)
  1. PREDNISONE [Suspect]
     Active Substance: PREDNISONE
     Indication: Plasma cell myeloma
     Dosage: 96 MILLIGRAM,5 WEEKS/CYCLEQ
     Route: 065
     Dates: end: 20180305
  2. MELPHALAN [Suspect]
     Active Substance: MELPHALAN
     Indication: Plasma cell myeloma
     Dosage: 14.4 MILLIGRAM, 5 WEEKS /CYCLE
     Route: 065
     Dates: end: 20180305
  3. VELCADE [Suspect]
     Active Substance: BORTEZOMIB
     Indication: Plasma cell myeloma
     Dosage: 2.1 MILLIGRAM,FIRST LINE TREATMENT WITH 3.7 MONTHS DURATION5 WEEKS PER CYCLE
     Route: 065
     Dates: end: 20180305

REACTIONS (3)
  - Adverse event [Unknown]
  - Off label use [Unknown]
  - Intentional product use issue [Unknown]

NARRATIVE: CASE EVENT DATE: 20180305
